FAERS Safety Report 5840749-7 (Version None)
Quarter: 2008Q3

REPORT INFORMATION
  Report Type: 
  Country: None (occurrence: None)
  Receive Date: 20080730
  Receipt Date: 20080611
  Transmission Date: 20090109
  Serious: No
  Sender: FDA-Public Use
  Company Number: PHEH2008US05345

PATIENT
  Sex: Female

DRUGS (1)
  1. TEKTURNA [Suspect]
     Dosage: 150 MG,QD,ORAL
     Route: 048
     Dates: end: 20080613

REACTIONS (9)
  - ANXIETY [None]
  - ARTHRALGIA [None]
  - EAR PAIN [None]
  - FATIGUE [None]
  - HYPERSENSITIVITY [None]
  - MALAISE [None]
  - NERVOUSNESS [None]
  - PAIN [None]
  - SOMNOLENCE [None]
